FAERS Safety Report 8154596-7 (Version None)
Quarter: 2012Q1

REPORT INFORMATION
  Report Type: 
  Country: None (occurrence: None)
  Receive Date: 20120221
  Receipt Date: 20120214
  Transmission Date: 20120608
  Serious: Yes (Hospitalization)
  Sender: FDA-Public Use
  Company Number: CA-B.I. PHARMACEUTICALS,INC./RIDGEFIELD-2012-CN-00367CN

PATIENT
  Age: 88 Year
  Sex: Female
  Weight: 68 kg

DRUGS (11)
  1. RAMIPRIL [Concomitant]
     Route: 065
  2. BETAXOLOL [Concomitant]
     Route: 065
  3. PROPAFENONE HCL [Concomitant]
     Route: 065
  4. BISOPROLOL FUMARATE [Concomitant]
     Route: 048
  5. EZETIMIBE [Concomitant]
     Route: 048
  6. FUROSEMIDE [Concomitant]
     Route: 048
  7. PANTOPRAZOLE [Concomitant]
     Route: 048
  8. LEVOTHYROXINE SODIUM [Concomitant]
     Route: 048
  9. TEMSIROLIMUS [Concomitant]
     Route: 048
  10. NITROGLYCERIN [Concomitant]
     Route: 065
  11. PRADAXA [Suspect]
     Dosage: 220 MG
     Route: 048

REACTIONS (3)
  - IMPAIRED HEALING [None]
  - CONTRAINDICATION TO SURGERY [None]
  - COAGULATION TIME PROLONGED [None]
